FAERS Safety Report 10759325 (Version 1)
Quarter: 2015Q1

REPORT INFORMATION
  Report Type: Report from Study
  Country: US (occurrence: US)
  Receive Date: 20150203
  Receipt Date: 20150203
  Transmission Date: 20150721
  Serious: Yes (Other)
  Sender: FDA-Public Use
  Company Number: US-ABBVIE-15P-163-1339613-00

PATIENT
  Sex: Female
  Weight: 64.92 kg

DRUGS (8)
  1. VITAMIN C [Concomitant]
     Active Substance: ASCORBIC ACID
     Indication: PRODUCT USED FOR UNKNOWN INDICATION
     Dosage: AS NEEDED
  2. LUPRON DEPOT [Suspect]
     Active Substance: LEUPROLIDE ACETATE
     Indication: ENDOMETRIOSIS
     Dosage: USED IN COMBO WITH 3.75MG
     Route: 030
     Dates: start: 2012, end: 2013
  3. LUPRON DEPOT [Suspect]
     Active Substance: LEUPROLIDE ACETATE
     Indication: ENDOMETRIOSIS
     Dosage: USED IN COMBO WITH 11.25MG
     Route: 030
     Dates: start: 2012, end: 2013
  4. LUPRON DEPOT [Suspect]
     Active Substance: LEUPROLIDE ACETATE
     Indication: OVARIAN CYST
     Dosage: USED IN COMBO WITH 11.25MG
     Route: 030
     Dates: start: 201412, end: 201412
  5. CURCUMIN [Concomitant]
     Active Substance: CURCUMIN
     Indication: VITAMIN SUPPLEMENTATION
  6. MAGNESIUM CITRATE. [Concomitant]
     Active Substance: MAGNESIUM CITRATE
     Indication: MINERAL SUPPLEMENTATION
     Dosage: 300-400 MILLIGRAM DAILY OR AS NEEDED
  7. LUPRON DEPOT [Suspect]
     Active Substance: LEUPROLIDE ACETATE
     Indication: OVARIAN CYST
     Dosage: USED IN COMBO WITH 3.75MG
     Route: 030
     Dates: start: 201408, end: 201412
  8. NORETHINDRONE. [Suspect]
     Active Substance: NORETHINDRONE
     Indication: HOT FLUSH
     Dosage: UNKNOWN DOSE
     Route: 065
     Dates: start: 2012, end: 2013

REACTIONS (6)
  - Pelvic pain [Recovering/Resolving]
  - Hot flush [Not Recovered/Not Resolved]
  - Alopecia [Recovered/Resolved]
  - Drug ineffective [Recovered/Resolved]
  - Ovarian cyst [Recovered/Resolved]
  - Sleep disorder [Recovered/Resolved]

NARRATIVE: CASE EVENT DATE: 2012
